FAERS Safety Report 12304924 (Version 1)
Quarter: 2016Q2

REPORT INFORMATION
  Report Type: Spontaneous
  Country: US (occurrence: US)
  Receive Date: 20160426
  Receipt Date: 20160426
  Transmission Date: 20160815
  Serious: No
  Sender: FDA-Public Use
  Company Number: US-PFIZER INC-2016197214

PATIENT

DRUGS (1)
  1. ADVIL PM [Suspect]
     Active Substance: DIPHENHYDRAMINE CITRATE\IBUPROFEN
     Indication: PAIN

REACTIONS (1)
  - Nightmare [Unknown]
